FAERS Safety Report 4386332-4 (Version None)
Quarter: 2004Q2

REPORT INFORMATION
  Report Type: 
  Country: None (occurrence: None)
  Receive Date: 20040629
  Receipt Date: 20040617
  Transmission Date: 20050107
  Serious: Yes (Other)
  Sender: FDA-Public Use
  Company Number: US-ROCHE-371553

PATIENT
  Age: 16 Year
  Sex: Female

DRUGS (1)
  1. ACCUTANE [Suspect]
     Route: 048
     Dates: end: 20030615

REACTIONS (3)
  - ACNE [None]
  - DISEASE RECURRENCE [None]
  - SUICIDE ATTEMPT [None]
